FAERS Safety Report 8239695-3 (Version None)
Quarter: 2012Q1

REPORT INFORMATION
  Report Type: 
  Country: None (occurrence: None)
  Receive Date: 20120328
  Receipt Date: 20120317
  Transmission Date: 20120608
  Serious: Yes (Other)
  Sender: FDA-Public Use
  Company Number: DE-JNJFOC-20120308244

PATIENT
  Sex: Male

DRUGS (2)
  1. ZYTIGA [Suspect]
     Indication: PROSTATE CANCER
     Route: 048
  2. XGEVA [Suspect]
     Indication: PROSTATE CANCER
     Route: 058

REACTIONS (2)
  - ARTHROPATHY [None]
  - JOINT SWELLING [None]
